FAERS Safety Report 18645678 (Version 1)
Quarter: 2020Q4

REPORT INFORMATION
  Report Type: Spontaneous
  Country: US (occurrence: US)
  Receive Date: 20201221
  Receipt Date: 20201221
  Transmission Date: 20210114
  Serious: Yes (Hospitalization, Congenital Anomaly, Other)
  Sender: FDA-Public Use
  Company Number: US-PURDUE-USA-2020-0182523

PATIENT
  Age: 2 Year
  Sex: Female

DRUGS (2)
  1. VICODIN [Suspect]
     Active Substance: ACETAMINOPHEN\HYDROCODONE BITARTRATE
     Indication: PRODUCT USED FOR UNKNOWN INDICATION
     Dosage: UNK
     Route: 048
  2. HYDROCODONE BITARTRATE AND ACETAMINOPHEN [Suspect]
     Active Substance: ACETAMINOPHEN\HYDROCODONE BITARTRATE
     Indication: PRODUCT USED FOR UNKNOWN INDICATION
     Dosage: UNK
     Route: 064

REACTIONS (12)
  - Learning disability [Unknown]
  - Respiratory tract infection [Unknown]
  - Attention deficit hyperactivity disorder [Unknown]
  - Developmental hip dysplasia [Not Recovered/Not Resolved]
  - Hip surgery [Unknown]
  - Congenital knee dislocation [Not Recovered/Not Resolved]
  - Dyslexia [Unknown]
  - Anaemia [Unknown]
  - Drug withdrawal syndrome neonatal [Unknown]
  - Spina bifida [Not Recovered/Not Resolved]
  - Hypoplastic left heart syndrome [Unknown]
  - Knee arthroplasty [Unknown]

NARRATIVE: CASE EVENT DATE: 201310
